FAERS Safety Report 5531817-8 (Version None)
Quarter: 2007Q4

REPORT INFORMATION
  Report Type: 
  Country: None (occurrence: None)
  Receive Date: 20071128
  Receipt Date: 20071128
  Transmission Date: 20080405
  Serious: Yes (Other)
  Sender: FDA-Public Use
  Company Number: None

PATIENT
  Age: 47 Year
  Sex: Female
  Weight: 61.2356 kg

DRUGS (2)
  1. SINGULAIR [Suspect]
     Indication: ASTHMA
     Dosage: ONCE DAILY PO
     Route: 048
     Dates: start: 20071105, end: 20071117
  2. SINGULAIR [Suspect]
     Indication: HYPERSENSITIVITY
     Dosage: ONCE DAILY PO
     Route: 048
     Dates: start: 20071105, end: 20071117

REACTIONS (6)
  - AGITATION [None]
  - CONVULSION [None]
  - DRUG INEFFECTIVE [None]
  - HEADACHE [None]
  - PALPITATIONS [None]
  - PHARYNGOLARYNGEAL PAIN [None]
